FAERS Safety Report 16832003 (Version 7)
Quarter: 2020Q1

REPORT INFORMATION
  Report Type: Spontaneous
  Country: US (occurrence: US)
  Receive Date: 20190920
  Receipt Date: 20200227
  Transmission Date: 20200409
  Serious: Yes (Other)
  Sender: FDA-Public Use
  Company Number: US-ACORDA-ACO_161147_2019

PATIENT
  Age: 34 Year
  Sex: Male

DRUGS (19)
  1. TECFIDERA [Suspect]
     Active Substance: DIMETHYL FUMARATE
     Indication: MULTIPLE SCLEROSIS
     Dosage: UNK
     Route: 065
     Dates: start: 20190912
  2. TRAMADOL HCL [Concomitant]
     Active Substance: TRAMADOL HYDROCHLORIDE
     Indication: PRODUCT USED FOR UNKNOWN INDICATION
     Dosage: UNK
     Route: 065
  3. TECFIDERA [Suspect]
     Active Substance: DIMETHYL FUMARATE
     Dosage: 120 MILLIGRAM, BID
     Route: 048
     Dates: start: 20190914
  4. PHENTERMINE HCL [Concomitant]
     Active Substance: PHENTERMINE HYDROCHLORIDE
     Indication: PRODUCT USED FOR UNKNOWN INDICATION
     Dosage: UNK
     Route: 065
  5. ZANAFLEX [Concomitant]
     Active Substance: TIZANIDINE HYDROCHLORIDE
     Indication: PRODUCT USED FOR UNKNOWN INDICATION
     Dosage: UNK
     Route: 065
  6. AMPYRA [Suspect]
     Active Substance: DALFAMPRIDINE
     Indication: GAIT DISTURBANCE
     Dosage: 10 MILLIGRAM, BID
     Route: 065
     Dates: start: 20181203, end: 201907
  7. LASIX [Concomitant]
     Active Substance: FUROSEMIDE
     Indication: PRODUCT USED FOR UNKNOWN INDICATION
     Dosage: UNK
     Route: 065
  8. LYRICA [Concomitant]
     Active Substance: PREGABALIN
     Indication: PRODUCT USED FOR UNKNOWN INDICATION
     Dosage: UNK
     Route: 065
  9. TYLENOL [Concomitant]
     Active Substance: ACETAMINOPHEN
     Indication: PRODUCT USED FOR UNKNOWN INDICATION
     Dosage: UNK
     Route: 065
  10. AVONEX [Suspect]
     Active Substance: INTERFERON BETA-1A
     Dosage: 30 MICROGRAM, WEEKLY
     Route: 065
     Dates: start: 20160929, end: 2018
  11. KLONOPIN [Concomitant]
     Active Substance: CLONAZEPAM
     Indication: PRODUCT USED FOR UNKNOWN INDICATION
     Dosage: UNK
     Route: 065
  12. AMPYRA [Suspect]
     Active Substance: DALFAMPRIDINE
     Indication: RELAPSING-REMITTING MULTIPLE SCLEROSIS
     Dosage: 10 MILLIGRAM, BID
     Route: 065
  13. AVONEX [Suspect]
     Active Substance: INTERFERON BETA-1A
     Indication: MULTIPLE SCLEROSIS
     Dosage: UNK, PEN
     Route: 030
     Dates: start: 20160923, end: 2018
  14. TECFIDERA [Suspect]
     Active Substance: DIMETHYL FUMARATE
     Dosage: TAKE 1 CAPSULE BY MOUTH TWICE A DAY AS DIRECTED
     Route: 048
     Dates: start: 201909
  15. TECFIDERA [Suspect]
     Active Substance: DIMETHYL FUMARATE
     Dosage: 240 MILLIGRAM, BID
     Route: 048
     Dates: start: 201909
  16. PREDNISOLONE. [Concomitant]
     Active Substance: PREDNISOLONE
     Indication: PRODUCT USED FOR UNKNOWN INDICATION
     Dosage: UNK
     Route: 065
  17. MEMANTINE HCL [Concomitant]
     Active Substance: MEMANTINE
     Indication: PRODUCT USED FOR UNKNOWN INDICATION
     Dosage: UNK
     Route: 065
  18. BETASERON [Concomitant]
     Active Substance: INTERFERON BETA-1B
     Indication: PRODUCT USED FOR UNKNOWN INDICATION
     Dosage: UNK
     Route: 065
  19. DIAZEPAM. [Concomitant]
     Active Substance: DIAZEPAM
     Indication: PRODUCT USED FOR UNKNOWN INDICATION
     Dosage: UNK
     Route: 065

REACTIONS (20)
  - Suicidal ideation [Recovered/Resolved]
  - Feeling abnormal [Recovered/Resolved]
  - Blood cholesterol increased [Not Recovered/Not Resolved]
  - Injection site pain [Recovered/Resolved]
  - Memory impairment [Not Recovered/Not Resolved]
  - Malaise [Recovered/Resolved]
  - Pain [Recovered/Resolved]
  - Hyperhidrosis [Not Recovered/Not Resolved]
  - Decreased activity [Unknown]
  - Flushing [Recovered/Resolved]
  - Multiple sclerosis relapse [Not Recovered/Not Resolved]
  - Therapy cessation [Recovered/Resolved]
  - Localised infection [Not Recovered/Not Resolved]
  - Diarrhoea [Recovered/Resolved]
  - Blood potassium decreased [Not Recovered/Not Resolved]
  - Diarrhoea [Unknown]
  - Abdominal discomfort [Recovered/Resolved with Sequelae]
  - Nausea [Recovered/Resolved]
  - Sphincter of Oddi dysfunction [Unknown]
  - Feeling hot [Recovered/Resolved with Sequelae]

NARRATIVE: CASE EVENT DATE: 201907
